FAERS Safety Report 15279305 (Version 7)
Quarter: 2019Q2

REPORT INFORMATION
  Report Type: Report from Study
  Country: US (occurrence: US)
  Receive Date: 20180815
  Receipt Date: 20190409
  Transmission Date: 20190711
  Serious: Yes (Death, Hospitalization, Other)
  Sender: FDA-Public Use
  Company Number: US-ROCHE-2168907

PATIENT
  Age: 56 Year
  Sex: Female
  Weight: 74.2 kg

DRUGS (2)
  1. GUADECITABINE [Suspect]
     Active Substance: GUADECITABINE
     Indication: OVARIAN EPITHELIAL CANCER
     Dosage: ON 20/JUL/2018, SHE RECEIVED THE MOST RECENT OF GUADECITABINE (275MG) PRIOR TO EVENT ONSET.
     Route: 058
     Dates: start: 20180716
  2. ATEZOLIZUMAB. [Suspect]
     Active Substance: ATEZOLIZUMAB
     Indication: OVARIAN EPITHELIAL CANCER
     Dosage: ON 23/JUL/2018, SHE RECEIVED THE MOST RECENT DOSE OF ATEZOLIZUMAB PRIOR TO EVENT ONSET.
     Route: 042
     Dates: start: 20180716

REACTIONS (5)
  - Neutrophil count decreased [Recovered/Resolved]
  - Platelet count decreased [Recovered/Resolved]
  - Lung infection [Recovered/Resolved]
  - Pleural effusion [Recovered/Resolved]
  - Sepsis [Fatal]

NARRATIVE: CASE EVENT DATE: 20180801
